FAERS Safety Report 4638174-X (Version None)
Quarter: 2005Q2

REPORT INFORMATION
  Report Type: 
  Country: None (occurrence: None)
  Receive Date: 20050415
  Receipt Date: 20050408
  Transmission Date: 20051028
  Serious: Yes (Disabling)
  Sender: FDA-Public Use
  Company Number: 034-05

PATIENT
  Age: 23 Year
  Sex: Female
  Weight: 113.3993 kg

DRUGS (1)
  1. NABUMETONE [Suspect]
     Indication: JOINT SWELLING
     Dosage: 500 MG 2 TABS QD PO; 1 DOSE
     Route: 048

REACTIONS (2)
  - MIGRAINE WITH AURA [None]
  - VITREOUS FLOATERS [None]
